FAERS Safety Report 18139000 (Version 1)
Quarter: 2020Q3

REPORT INFORMATION
  Report Type: Spontaneous
  Country: US (occurrence: US)
  Receive Date: 20200812
  Receipt Date: 20200812
  Transmission Date: 20201103
  Serious: Yes (Other)
  Sender: FDA-Public Use
  Company Number: US-ALKEM LABORATORIES LIMITED-US-ALKEM-2020-04561

PATIENT
  Age: 41 Year
  Sex: Female

DRUGS (7)
  1. VANCOMYCIN [Concomitant]
     Active Substance: VANCOMYCIN
     Indication: ANTIBIOTIC PROPHYLAXIS
     Dosage: ROUTINE PERIOPERATIVE BACTERIAL PROPHYLAXIS FOR 48 H
     Route: 065
  2. PREDNISONE. [Suspect]
     Active Substance: PREDNISONE
     Indication: IMMUNOSUPPRESSION
     Dosage: UNK
     Route: 065
  3. TACROLIMUS. [Suspect]
     Active Substance: TACROLIMUS
     Indication: IMMUNOSUPPRESSION
     Dosage: UNK
     Route: 065
  4. CEFEPIME [Concomitant]
     Active Substance: CEFEPIME HYDROCHLORIDE
     Indication: ANTIBIOTIC PROPHYLAXIS
     Dosage: ROUTINE PERIOPERATIVE BACTERIAL PROPHYLAXIS FOR 48?72 H
     Route: 065
  5. MYCOPHENOLATE MOFETIL. [Suspect]
     Active Substance: MYCOPHENOLATE MOFETIL
     Indication: IMMUNOSUPPRESSION
     Dosage: UNK
     Route: 065
  6. ANTITHYMOCYTE GLOBULIN [Suspect]
     Active Substance: THYMOCYTE IMMUNE GLOBULIN NOS
     Indication: IMMUNOSUPPRESSION
     Dosage: UNK
     Route: 065
  7. TRIMETHOPRIM/SULFAMETHOXASOLE [Concomitant]
     Indication: ANTIBIOTIC PROPHYLAXIS
     Dosage: BEGUN ON POST?OPERATIVE DAY 2 OR 3.
     Route: 065

REACTIONS (4)
  - Mediastinitis [Recovered/Resolved]
  - Mycoplasma infection [Recovered/Resolved]
  - Shock [Recovered/Resolved]
  - Anastomotic leak [Recovered/Resolved]
